FAERS Safety Report 6058755-9 (Version None)
Quarter: 2009Q1

REPORT INFORMATION
  Report Type: 
  Country: None (occurrence: None)
  Receive Date: 20090130
  Receipt Date: 20090121
  Transmission Date: 20090719
  Serious: Yes (Other)
  Sender: FDA-Public Use
  Company Number: US-JNJFOC-20081003875

PATIENT
  Sex: Female
  Weight: 107.96 kg

DRUGS (15)
  1. REMICADE [Suspect]
     Route: 042
  2. REMICADE [Suspect]
     Route: 042
  3. REMICADE [Suspect]
     Indication: RHEUMATOID ARTHRITIS
     Route: 042
  4. METHOTREXATE [Concomitant]
     Route: 048
  5. RELAFEN [Concomitant]
     Route: 048
  6. FOLIC ACID [Concomitant]
     Route: 048
  7. K-DUR [Concomitant]
     Route: 048
  8. LEVOXYL [Concomitant]
     Route: 048
  9. CALCIUM [Concomitant]
     Route: 048
  10. ALDACTONE [Concomitant]
     Route: 048
  11. LISINOPRIL [Concomitant]
     Route: 048
  12. SOTALOL [Concomitant]
     Route: 048
  13. COUMADIN [Concomitant]
     Route: 048
  14. ACETAMINOPHEN AND HYDROCODONE BITARTRATE [Concomitant]
     Dosage: 5/500
     Route: 048
  15. LASIX [Concomitant]
     Route: 048

REACTIONS (1)
  - FEMUR FRACTURE [None]
